FAERS Safety Report 21670695 (Version 6)
Quarter: 2024Q3

REPORT INFORMATION
  Report Type: Spontaneous
  Country: CA (occurrence: CA)
  Receive Date: 20221202
  Receipt Date: 20240703
  Transmission Date: 20241016
  Serious: Yes (Other)
  Sender: CELLTRION
  Company Number: CA-CELLTRION INC.-2022CA005249

PATIENT

DRUGS (5)
  1. INFLECTRA [Suspect]
     Active Substance: INFLIXIMAB-DYYB
     Indication: Rheumatoid arthritis
     Dosage: 584 MG, (ADJUST TO 8 MG/KG) EVERY 8 WEEKS
     Route: 042
     Dates: start: 20220830
  2. INFLECTRA [Suspect]
     Active Substance: INFLIXIMAB-DYYB
     Indication: Psoriasis
     Dosage: 584 MG, (ADJUST TO 8 MG/KG) EVERY 8 WEEKS
     Route: 042
     Dates: start: 20221128
  3. INFLECTRA [Suspect]
     Active Substance: INFLIXIMAB-DYYB
     Indication: Psoriatic arthropathy
     Dosage: 571 MG, EVERY 8 WEEKS
     Route: 042
     Dates: start: 20230120
  4. INFLECTRA [Suspect]
     Active Substance: INFLIXIMAB-DYYB
     Dosage: 8 MG/KG EVERY 8 WEEKS
     Route: 042
     Dates: start: 20231220
  5. INFLECTRA [Suspect]
     Active Substance: INFLIXIMAB-DYYB
     Dosage: 8 MG/KG EVERY 8 WEEKS
     Route: 042
     Dates: start: 20240216

REACTIONS (8)
  - Road traffic accident [Unknown]
  - Clavicle fracture [Recovering/Resolving]
  - Off label use [Unknown]
  - Off label use [Unknown]
  - Intentional product use issue [Unknown]
  - Cough [Unknown]
  - Erythema [Unknown]
  - Drug level above therapeutic [Unknown]

NARRATIVE: CASE EVENT DATE: 20221006
